FAERS Safety Report 14750643 (Version 2)
Quarter: 2018Q2

REPORT INFORMATION
  Report Type: Spontaneous
  Country: US (occurrence: US)
  Receive Date: 20180412
  Receipt Date: 20180511
  Transmission Date: 20180711
  Serious: No
  Sender: FDA-Public Use
  Company Number: US-PFIZER INC-2018146907

PATIENT

DRUGS (1)
  1. QUELICIN [Suspect]
     Active Substance: SUCCINYLCHOLINE CHLORIDE
     Dosage: 140 MG, UNK

REACTIONS (4)
  - Drug ineffective [Unknown]
  - Muscle contractions involuntary [Unknown]
  - Throat tightness [Unknown]
  - Cough [Unknown]
